FAERS Safety Report 5081200-7 (Version None)
Quarter: 2006Q3

REPORT INFORMATION
  Report Type: 
  Country: None (occurrence: None)
  Receive Date: 20060810
  Receipt Date: 20060725
  Transmission Date: 20061208
  Serious: Yes (Other)
  Sender: FDA-Public Use
  Company Number: 25345

PATIENT
  Age: 62 Year
  Sex: Male
  Weight: 83.9154 kg

DRUGS (7)
  1. NIASPAN [Suspect]
     Indication: HIGH DENSITY LIPOPROTEIN DECREASED
     Dosage: 4000 MG QHS PO
     Route: 048
     Dates: start: 20060725, end: 20060725
  2. GLUCOPHAGE XR [Concomitant]
  3. LIPITOR [Concomitant]
  4. ACIPHEX [Concomitant]
  5. AVAPRO [Concomitant]
  6. METOPROLOL TARTRATE [Concomitant]
  7. FISH OIL [Concomitant]

REACTIONS (3)
  - ACCIDENTAL OVERDOSE [None]
  - FLUSHING [None]
  - WRONG DRUG ADMINISTERED [None]
